FAERS Safety Report 7779132-6 (Version None)
Quarter: 2011Q3

REPORT INFORMATION
  Report Type: 
  Country: None (occurrence: None)
  Receive Date: 20110926
  Receipt Date: 20110921
  Transmission Date: 20111222
  Serious: Yes (Hospitalization)
  Sender: FDA-Public Use
  Company Number: CHPA2011US12854

PATIENT
  Age: 31 Month
  Sex: Female

DRUGS (1)
  1. EX-LAX REG STR LAX PILLS SENNA [Suspect]
     Dosage: 2 DF, ONCE/SINGLE
     Route: 048
     Dates: start: 20110912, end: 20110912

REACTIONS (4)
  - ACCIDENTAL DRUG INTAKE BY CHILD [None]
  - BURNS SECOND DEGREE [None]
  - ACCIDENTAL OVERDOSE [None]
  - SCREAMING [None]
